FAERS Safety Report 12256136 (Version 2)
Quarter: 2016Q2

REPORT INFORMATION
  Report Type: Spontaneous
  Country: US (occurrence: US)
  Receive Date: 20160412
  Receipt Date: 20160520
  Transmission Date: 20160815
  Serious: No
  Sender: FDA-Public Use
  Company Number: US-PFIZER INC-2016160258

PATIENT
  Age: 97 Year
  Sex: Female
  Weight: 59.42 kg

DRUGS (2)
  1. METOPROLOL. [Concomitant]
     Active Substance: METOPROLOL
     Indication: BLOOD PRESSURE ABNORMAL
     Dosage: 50 MG, 1X/DAY
  2. NITROSTAT [Suspect]
     Active Substance: NITROGLYCERIN
     Indication: CHEST PAIN
     Dosage: 0.4 MG, TABLETS, AS NEEDED
     Route: 048

REACTIONS (1)
  - Drug effect delayed [Not Recovered/Not Resolved]

NARRATIVE: CASE EVENT DATE: 20160301
